FAERS Safety Report 5938146-9 (Version None)
Quarter: 2008Q4

REPORT INFORMATION
  Report Type: 
  Country: None (occurrence: None)
  Receive Date: 20081031
  Receipt Date: 20081021
  Transmission Date: 20090506
  Serious: Yes (Other)
  Sender: FDA-Public Use
  Company Number: NL-PFIZER INC-2008088764

PATIENT
  Sex: Female
  Weight: 55 kg

DRUGS (9)
  1. CHAMPIX [Suspect]
     Indication: SMOKING CESSATION THERAPY
     Route: 048
     Dates: start: 20080801, end: 20081018
  2. DICLOFENAC [Concomitant]
     Indication: DYSMENORRHOEA
  3. EFFEXOR [Concomitant]
     Indication: DEPRESSION
     Dates: start: 20080501
  4. CLONIDINE [Concomitant]
     Dates: start: 20020101
  5. RIVOTRIL [Concomitant]
     Indication: SPINAL OSTEOARTHRITIS
     Dates: start: 20020101
  6. AERIUS [Concomitant]
     Indication: DERMATITIS ALLERGIC
     Dates: start: 20030101
  7. AERIUS [Concomitant]
     Indication: ALLERGIC RESPIRATORY DISEASE
  8. RANITIDINE [Concomitant]
     Dates: start: 20020101
  9. DOMPERIDONE [Concomitant]
     Indication: NAUSEA
     Dates: start: 20020101

REACTIONS (6)
  - AGGRESSION [None]
  - CONSTIPATION [None]
  - DEPRESSION [None]
  - PSYCHOTIC DISORDER [None]
  - SELF INJURIOUS BEHAVIOUR [None]
  - SUICIDAL IDEATION [None]
